FAERS Safety Report 14844424 (Version 1)
Quarter: 2018Q2

REPORT INFORMATION
  Report Type: Spontaneous
  Country: US (occurrence: US)
  Receive Date: 20180503
  Receipt Date: 20180503
  Transmission Date: 20180711
  Serious: Yes (Other)
  Sender: FDA-Public Use
  Company Number: US-GLAXOSMITHKLINE-US2018077554

PATIENT
  Age: 78 Year
  Sex: Male

DRUGS (1)
  1. TANZEUM [Suspect]
     Active Substance: ALBIGLUTIDE
     Indication: PRODUCT USED FOR UNKNOWN INDICATION
     Dosage: 30 MG, UNK
     Route: 058

REACTIONS (5)
  - Adenocarcinoma [Not Recovered/Not Resolved]
  - Pain [Unknown]
  - Herpes zoster [Not Recovered/Not Resolved]
  - Wrong technique in product usage process [Unknown]
  - Muscle spasms [Unknown]

NARRATIVE: CASE EVENT DATE: 201804
